FAERS Safety Report 21026115 (Version 3)
Quarter: 2023Q1

REPORT INFORMATION
  Report Type: Spontaneous
  Country: CA (occurrence: CA)
  Receive Date: 20220630
  Receipt Date: 20230321
  Transmission Date: 20230417
  Serious: Yes (Death, Hospitalization, Other)
  Sender: FDA-Public Use
  Company Number: CA-SAMSUNG BIOEPIS-SB-2022-15448

PATIENT
  Age: 35 Year
  Sex: Male
  Weight: 165 kg

DRUGS (3)
  1. INFLIXIMAB [Suspect]
     Active Substance: INFLIXIMAB
     Indication: Crohn^s disease
     Route: 042
  2. INFLIXIMAB [Suspect]
     Active Substance: INFLIXIMAB
     Route: 042
  3. INFLIXIMAB [Suspect]
     Active Substance: INFLIXIMAB
     Route: 042

REACTIONS (23)
  - Death [Fatal]
  - Abdominal pain [Fatal]
  - Anaphylactic reaction [Fatal]
  - Blood pressure decreased [Fatal]
  - COVID-19 [Fatal]
  - Diarrhoea [Fatal]
  - Hyperhidrosis [Fatal]
  - Lip swelling [Fatal]
  - Malaise [Fatal]
  - Nasal congestion [Fatal]
  - Nausea [Fatal]
  - Pallor [Fatal]
  - Pharyngeal swelling [Fatal]
  - Throat irritation [Fatal]
  - Vomiting [Fatal]
  - Atrial fibrillation [Fatal]
  - Bedridden [Fatal]
  - Condition aggravated [Fatal]
  - Muscle spasms [Fatal]
  - Weight increased [Fatal]
  - Drug level decreased [Fatal]
  - Off label use [Fatal]
  - Inappropriate schedule of product administration [Fatal]
